FAERS Safety Report 6995561 (Version 31)
Quarter: 2019Q1

REPORT INFORMATION
  Report Type: Report from Study
  Country: CA (occurrence: CA)
  Receive Date: 20090515
  Receipt Date: 20190309
  Transmission Date: 20190418
  Serious: Yes (Other)
  Sender: FDA-Public Use
  Company Number: PHHY2009CA17803

PATIENT
  Age: 9 Year
  Sex: Male

DRUGS (9)
  1. SANDOSTATIN LAR DEPOT [Suspect]
     Active Substance: OCTREOTIDE ACETATE
     Dosage: 30 MG, QMO (EVERY FOUR WEEKS)
     Route: 030
     Dates: start: 20160308
  2. SANDOSTATIN LAR DEPOT [Suspect]
     Active Substance: OCTREOTIDE ACETATE
     Indication: ALBRIGHT^S DISEASE
     Dosage: 10 MG
     Route: 065
     Dates: start: 20060828
  3. SANDOSTATIN LAR DEPOT [Suspect]
     Active Substance: OCTREOTIDE ACETATE
     Dosage: 20 MG, QMO (ONCE A MONTH)
     Route: 030
     Dates: start: 20070917
  4. ATIVAN [Concomitant]
     Active Substance: LORAZEPAM
     Indication: PRODUCT USED FOR UNKNOWN INDICATION
     Dosage: UNK UNK, PRN (AS NEEDED)
     Route: 065
  5. CABERGOLINE. [Concomitant]
     Active Substance: CABERGOLINE
     Indication: PRODUCT USED FOR UNKNOWN INDICATION
     Dosage: 0.25 MG, BIW
     Route: 065
  6. SANDOSTATIN LAR DEPOT [Suspect]
     Active Substance: OCTREOTIDE ACETATE
     Dosage: 30 MG, QMO (EVERY FOUR WEEKS)
     Route: 030
  7. SANDOSTATIN LAR DEPOT [Suspect]
     Active Substance: OCTREOTIDE ACETATE
     Indication: PITUITARY TUMOUR
     Dosage: 5 MG, QMO (EVERY FOUR WEEKS)
     Route: 030
     Dates: start: 20041217
  8. SANDOSTATIN LAR DEPOT [Suspect]
     Active Substance: OCTREOTIDE ACETATE
     Dosage: 15 MG, QMO (ONCE A MONTH)
     Route: 030
     Dates: start: 20061011
  9. SANDOSTATIN LAR DEPOT [Suspect]
     Active Substance: OCTREOTIDE ACETATE
     Dosage: 30 MG, QMO (EVERY FOUR WEEKS)
     Route: 030
     Dates: start: 20080924

REACTIONS (24)
  - Bone disorder [Unknown]
  - Heart rate increased [Unknown]
  - Varicella [Unknown]
  - Migraine [Unknown]
  - Insomnia [Unknown]
  - Nasal congestion [Unknown]
  - Gait disturbance [Unknown]
  - Bone pain [Unknown]
  - Pain [Unknown]
  - Tachyphrenia [Unknown]
  - Malaise [Unknown]
  - Anxiety [Recovering/Resolving]
  - Blood growth hormone increased [Unknown]
  - Respiratory rate increased [Unknown]
  - Mobility decreased [Unknown]
  - Headache [Unknown]
  - Limb discomfort [Unknown]
  - Blood pressure diastolic decreased [Unknown]
  - Asthenia [Unknown]
  - Blood pressure systolic increased [Unknown]
  - Facial pain [Unknown]
  - Nightmare [Unknown]
  - Needle issue [Unknown]
  - Dyspnoea [Unknown]

NARRATIVE: CASE EVENT DATE: 200902
